FAERS Safety Report 12874382 (Version 2)
Quarter: 2017Q1

REPORT INFORMATION
  Report Type: Spontaneous
  Country: US (occurrence: US)
  Receive Date: 20161021
  Receipt Date: 20170123
  Transmission Date: 20170428
  Serious: No
  Sender: FDA-Public Use
  Company Number: US-DEPOMED, INC.-US-2016DEP008230

PATIENT

DRUGS (5)
  1. NUCYNTA ER [Suspect]
     Active Substance: TAPENTADOL HYDROCHLORIDE
     Indication: PAIN MANAGEMENT
     Dosage: 100 MG, BID
     Route: 048
     Dates: start: 2015, end: 20151231
  2. SYNTHROID [Concomitant]
     Active Substance: LEVOTHYROXINE SODIUM
     Indication: THYROID CANCER
     Dosage: 150 ?G, QD
     Route: 048
     Dates: start: 2001
  3. NUCYNTA [Suspect]
     Active Substance: TAPENTADOL HYDROCHLORIDE
     Indication: PAIN MANAGEMENT
     Dosage: 75 MG, QID; [EVERY 4 TO 5 HOURS]
     Route: 048
     Dates: start: 2015, end: 201601
  4. NUCYNTA [Suspect]
     Active Substance: TAPENTADOL HYDROCHLORIDE
     Dosage: 100 MG; (1 EVERY 4 HOURS)(6 TIMES EVERY 1 DAY)
     Route: 048
     Dates: start: 201601
  5. CYMBALTA [Concomitant]
     Active Substance: DULOXETINE HYDROCHLORIDE
     Indication: FIBROMYALGIA
     Dosage: 60 MG, BID
     Route: 048
     Dates: start: 2011

REACTIONS (6)
  - Adverse event [Unknown]
  - Drug ineffective [Unknown]
  - Drug dose titration not performed [Recovered/Resolved]
  - Medication error [Recovered/Resolved]
  - Product quality issue [Unknown]
  - Mental impairment [Not Recovered/Not Resolved]

NARRATIVE: CASE EVENT DATE: 2015
